FAERS Safety Report 15034203 (Version 1)
Quarter: 2018Q2

REPORT INFORMATION
  Report Type: Spontaneous
  Country: US (occurrence: US)
  Receive Date: 20180620
  Receipt Date: 20180620
  Transmission Date: 20180711
  Serious: No
  Sender: FDA-Public Use
  Company Number: US-TEVA-816211USA

PATIENT
  Sex: Female
  Weight: 111.68 kg

DRUGS (10)
  1. ZETIA [Concomitant]
     Active Substance: EZETIMIBE
     Indication: BLOOD CHOLESTEROL INCREASED
  2. PREDNISONE. [Suspect]
     Active Substance: PREDNISONE
     Route: 065
  3. LEVEMIR [Concomitant]
     Active Substance: INSULIN DETEMIR
     Indication: DIABETES MELLITUS
  4. CALCIUM [Concomitant]
     Active Substance: CALCIUM
  5. NOVOLOG [Concomitant]
     Active Substance: INSULIN ASPART
     Indication: DIABETES MELLITUS
  6. LOSARTAN. [Concomitant]
     Active Substance: LOSARTAN
     Indication: HYPERTENSION
  7. FLUTICASONE. [Concomitant]
     Active Substance: FLUTICASONE
  8. POTASSIUM [Concomitant]
     Active Substance: POTASSIUM
  9. REFRESH EYE DROPS [Concomitant]
  10. ASPIRIN. [Concomitant]
     Active Substance: ASPIRIN

REACTIONS (1)
  - Blood glucose increased [Recovering/Resolving]
